FAERS Safety Report 10627102 (Version 3)
Quarter: 2016Q1

REPORT INFORMATION
  Report Type: Spontaneous
  Country: IT (occurrence: IT)
  Receive Date: 20141204
  Receipt Date: 20160211
  Transmission Date: 20160525
  Serious: Yes (Hospitalization, Other)
  Sender: FDA-Public Use
  Company Number: IT-BRISTOL-MYERS SQUIBB COMPANY-21657507

PATIENT
  Age: 55 Year
  Sex: Female
  Weight: 63 kg

DRUGS (3)
  1. AMBRISENTAN [Suspect]
     Active Substance: AMBRISENTAN
     Indication: PULMONARY HYPERTENSION
     Dosage: 10 MG, QD
     Route: 048
     Dates: start: 20141022
  2. COUMADIN [Suspect]
     Active Substance: WARFARIN SODIUM
     Indication: ANTICOAGULANT THERAPY
     Dosage: 5 MG, QD
     Route: 048
     Dates: start: 20141022, end: 20141105
  3. TREPROSTINIL [Suspect]
     Active Substance: TREPROSTINIL
     Indication: PRODUCT USED FOR UNKNOWN INDICATION
     Dosage: TABLETS
     Route: 048
     Dates: start: 20141022, end: 20141105

REACTIONS (6)
  - Off label use [Unknown]
  - Duodenal ulcer [Recovered/Resolved]
  - Anaemia [Recovered/Resolved]
  - Gastric disorder [Recovered/Resolved]
  - Intestinal haemorrhage [Recovered/Resolved]
  - Helicobacter infection [Recovered/Resolved]

NARRATIVE: CASE EVENT DATE: 20141105
